FAERS Safety Report 7945759-1 (Version None)
Quarter: 2011Q4

REPORT INFORMATION
  Report Type: 
  Country: None (occurrence: None)
  Receive Date: 20111129
  Receipt Date: 20111121
  Transmission Date: 20120403
  Serious: Yes (Life-Threatening)
  Sender: FDA-Public Use
  Company Number: DE-CELGENEUS-062-50794-11090652

PATIENT
  Age: 79 Year
  Sex: Female
  Weight: 76 kg

DRUGS (6)
  1. PANTOPRAZOLE SODIUM [Concomitant]
     Dosage: 20 MILLIGRAM
     Route: 065
  2. RAMIPRIL [Concomitant]
     Indication: HYPERTENSION
     Dosage: 5 MILLIGRAM
     Route: 065
  3. ASPIRIN [Concomitant]
     Dosage: 100 MILLIGRAM
     Route: 065
  4. VIDAZA [Suspect]
     Route: 050
     Dates: start: 20110201, end: 20110501
  5. BISOPROLOL FUMARATE [Concomitant]
     Dosage: 2.5 MILLIGRAM
     Route: 065
  6. HYDROCHLOROTHIAZIDE [Concomitant]
     Indication: HYPERTENSION
     Dosage: 25 MILLIGRAM
     Route: 065

REACTIONS (2)
  - ACUTE MYELOID LEUKAEMIA [None]
  - NO THERAPEUTIC RESPONSE [None]
